FAERS Safety Report 9878118 (Version 1)
Quarter: 2014Q1

REPORT INFORMATION
  Report Type: Spontaneous
  Country: US (occurrence: US)
  Receive Date: 20140206
  Receipt Date: 20140206
  Transmission Date: 20141002
  Serious: No
  Sender: FDA-Public Use
  Company Number: US-BAXTER-2014BAX004204

PATIENT
  Sex: Female

DRUGS (6)
  1. DIANEAL LOW CALCIUM [Suspect]
     Indication: PERITONEAL DIALYSIS
     Route: 033
     Dates: start: 20130513
  2. DIANEAL LOW CALCIUM [Suspect]
     Route: 033
     Dates: start: 20130513
  3. DIANEAL LOW CALCIUM [Suspect]
     Indication: PERITONEAL DIALYSIS
     Route: 033
     Dates: start: 20130513
  4. DIANEAL LOW CALCIUM [Suspect]
     Route: 033
     Dates: start: 20130513
  5. DIANEAL LOW CALCIUM [Suspect]
     Indication: PERITONEAL DIALYSIS
     Route: 033
     Dates: start: 20130513
  6. DIANEAL LOW CALCIUM [Suspect]
     Route: 033
     Dates: start: 20130513

REACTIONS (2)
  - Peritoneal dialysis complication [Recovering/Resolving]
  - Dehydration [Recovering/Resolving]
